FAERS Safety Report 13350950 (Version 1)
Quarter: 2017Q1

REPORT INFORMATION
  Report Type: Spontaneous
  Country: US (occurrence: US)
  Receive Date: 20170320
  Receipt Date: 20170320
  Transmission Date: 20170429
  Serious: No
  Sender: FDA-Public Use
  Company Number: US-PFIZER INC-2017117690

PATIENT
  Age: 57 Year
  Sex: Female
  Weight: 122 kg

DRUGS (1)
  1. LYRICA [Suspect]
     Active Substance: PREGABALIN
     Dosage: 150 MG, 2X/DAY

REACTIONS (5)
  - Malaise [Unknown]
  - Nervousness [Recovered/Resolved]
  - Cystitis [Unknown]
  - Diplopia [Recovered/Resolved]
  - Feeling jittery [Recovered/Resolved]
